FAERS Safety Report 4611648-3 (Version None)
Quarter: 2005Q2

REPORT INFORMATION
  Report Type: 
  Country: None (occurrence: None)
  Receive Date: 20050311
  Receipt Date: 20050107
  Transmission Date: 20051028
  Serious: No
  Sender: FDA-Public Use
  Company Number: 2005-BP-00321BP

PATIENT
  Age: 80 Year
  Sex: Male

DRUGS (5)
  1. SPIRIVA [Suspect]
     Indication: CHRONIC OBSTRUCTIVE PULMONARY DISEASE
     Dosage: 18 MCG (18 MCG, QD), IH
     Route: 055
     Dates: start: 20041104
  2. SPIRIVA [Suspect]
     Indication: CHRONIC OBSTRUCTIVE PULMONARY DISEASE
     Dosage: 18 MCG (18 MCG, QD), IH
     Route: 055
     Dates: start: 20041104
  3. AEROBID [Concomitant]
  4. FORADIL [Concomitant]
  5. ALBUTEROL [Concomitant]

REACTIONS (9)
  - CHEST PAIN [None]
  - DIZZINESS [None]
  - DYSPNOEA EXACERBATED [None]
  - FEELING ABNORMAL [None]
  - HEART RATE DECREASED [None]
  - HYPOTENSION [None]
  - NASOPHARYNGITIS [None]
  - PYREXIA [None]
  - SLUGGISHNESS [None]
